FAERS Safety Report 5158404-8 (Version None)
Quarter: 2006Q4

REPORT INFORMATION
  Report Type: 
  Country: None (occurrence: None)
  Receive Date: 20061128
  Receipt Date: 20061115
  Transmission Date: 20070319
  Serious: Yes (Hospitalization)
  Sender: FDA-Public Use
  Company Number: PHEH2006US14315

PATIENT
  Age: 65 Year
  Sex: Female

DRUGS (2)
  1. CLOZARIL [Suspect]
     Dosage: UNK, UNK
     Route: 048
  2. COZAAR [Suspect]
     Indication: HYPERTENSION

REACTIONS (5)
  - DRUG DISPENSING ERROR [None]
  - HALLUCINATION [None]
  - LETHARGY [None]
  - MEDICATION ERROR [None]
  - WRONG DRUG ADMINISTERED [None]
